FAERS Safety Report 6065423-6 (Version None)
Quarter: 2009Q1

REPORT INFORMATION
  Report Type: 
  Country: None (occurrence: None)
  Receive Date: 20090204
  Receipt Date: 20090123
  Transmission Date: 20090719
  Serious: No
  Sender: FDA-Public Use
  Company Number: CA-PFIZER INC-2008154246

PATIENT

DRUGS (4)
  1. DILANTIN [Suspect]
     Route: 048
     Dates: start: 20060601
  2. ATENOLOL [Concomitant]
     Dosage: UNK
  3. PANTOPRAZOLE SODIUM [Concomitant]
     Dosage: UNK
  4. DIDRONEL [Concomitant]
     Dosage: UNK

REACTIONS (1)
  - CONVULSION [None]
